FAERS Safety Report 6784056-7 (Version None)
Quarter: 2010Q2

REPORT INFORMATION
  Report Type: 
  Country: None (occurrence: None)
  Receive Date: 20100622
  Receipt Date: 20100611
  Transmission Date: 20101027
  Serious: Yes (Hospitalization)
  Sender: FDA-Public Use
  Company Number: FR-JNJFOC-20100605685

PATIENT
  Age: 45 Year
  Sex: Female

DRUGS (4)
  1. REOPRO [Suspect]
     Indication: MYOCARDIAL ISCHAEMIA
     Dosage: INFUSION OVER 18 HOURS
     Route: 042
  2. REOPRO [Suspect]
     Dosage: INFUSION OVER 18 HOURS
     Route: 042
  3. HEPARIN [Concomitant]
     Indication: MYOCARDIAL INFARCTION
  4. HEPARIN [Concomitant]

REACTIONS (7)
  - ANAEMIA [None]
  - EOSINOPHILIA [None]
  - FAT EMBOLISM [None]
  - RASH MACULAR [None]
  - SKIN DISCOLOURATION [None]
  - THROMBOCYTOPENIA [None]
  - THROMBOSIS IN DEVICE [None]
